FAERS Safety Report 11234912 (Version 1)
Quarter: 2015Q3

REPORT INFORMATION
  Report Type: Spontaneous
  Country: US (occurrence: US)
  Receive Date: 20150702
  Receipt Date: 20150702
  Transmission Date: 20151125
  Serious: No
  Sender: FDA-Public Use
  Company Number: US-PFIZER INC-2015216305

PATIENT
  Age: 64 Year
  Sex: Male
  Weight: 95 kg

DRUGS (3)
  1. TIKOSYN [Suspect]
     Active Substance: DOFETILIDE
     Dosage: 125 ?G, 2X/DAY
  2. COREG [Concomitant]
     Active Substance: CARVEDILOL
     Dosage: UNK
  3. XARELTO [Concomitant]
     Active Substance: RIVAROXABAN
     Dosage: UNK

REACTIONS (1)
  - Headache [Recovered/Resolved]
